FAERS Safety Report 10885054 (Version 1)
Quarter: 2015Q1

REPORT INFORMATION
  Report Type: Spontaneous
  Country: US (occurrence: US)
  Receive Date: 20150304
  Receipt Date: 20150304
  Transmission Date: 20150721
  Serious: No
  Sender: FDA-Public Use
  Company Number: US-TEVA-530195USA

PATIENT
  Age: 78 Year
  Sex: Female
  Weight: 68.03 kg

DRUGS (4)
  1. CETIRIZINE W/PSEUDOEPHEDRINE [Suspect]
     Active Substance: CETIRIZINE HYDROCHLORIDE\PSEUDOEPHEDRINE HYDROCHLORIDE
     Indication: NASAL CONGESTION
     Route: 048
     Dates: start: 20141211, end: 20141215
  2. LOSARTAN [Concomitant]
     Active Substance: LOSARTAN
     Dates: start: 2013
  3. VITAMINS NOS [Concomitant]
     Active Substance: VITAMINS
  4. VITAMIN E NOS [Concomitant]
     Dates: start: 201412

REACTIONS (3)
  - Joint swelling [Recovered/Resolved]
  - Drug administered to patient of inappropriate age [Unknown]
  - Oedema peripheral [Recovered/Resolved]

NARRATIVE: CASE EVENT DATE: 20141214
